FAERS Safety Report 13567115 (Version 1)
Quarter: 2017Q2

REPORT INFORMATION
  Report Type: Spontaneous
  Country: US (occurrence: US)
  Receive Date: 20170521
  Receipt Date: 20170521
  Transmission Date: 20170830
  Serious: Yes (Disabling)
  Sender: FDA-Public Use
  Company Number: None

PATIENT
  Age: 54 Year
  Weight: 90.45 kg

DRUGS (4)
  1. VIBERZI [Suspect]
     Active Substance: ELUXADOLINE
     Indication: DIARRHOEA
     Dosage: ?          QUANTITY:48 CAPSULE(S);?
     Route: 048
     Dates: start: 20170120, end: 20170125
  2. ZOLPEDIAM [Concomitant]
  3. REQUIPE [Concomitant]
  4. LISENOPRYL [Concomitant]

REACTIONS (2)
  - Contraindication to medical treatment [None]
  - Malaise [None]

NARRATIVE: CASE EVENT DATE: 20170120
